FAERS Safety Report 13913756 (Version 1)
Quarter: 2017Q3

REPORT INFORMATION
  Report Type: Spontaneous
  Country: US (occurrence: US)
  Receive Date: 20170828
  Receipt Date: 20170828
  Transmission Date: 20171127
  Serious: No
  Sender: FDA-Public Use
  Company Number: US-ROCHE-1140393

PATIENT
  Sex: Female

DRUGS (7)
  1. PAROXETINE. [Concomitant]
     Active Substance: PAROXETINE
     Route: 048
  2. NUTROPIN AQ [Suspect]
     Active Substance: SOMATROPIN
     Indication: HYPOTHALAMO-PITUITARY DISORDER
     Route: 058
     Dates: start: 19960325
  3. LEVOTHYROXINE. [Concomitant]
     Active Substance: LEVOTHYROXINE
     Route: 048
  4. NUTROPIN AQ [Suspect]
     Active Substance: SOMATROPIN
     Route: 058
  5. PAXIL [Concomitant]
     Active Substance: PAROXETINE HYDROCHLORIDE
     Route: 048
  6. NUTROPIN AQ [Suspect]
     Active Substance: SOMATROPIN
     Route: 058
  7. ZOLOFT [Concomitant]
     Active Substance: SERTRALINE HYDROCHLORIDE
     Route: 065

REACTIONS (4)
  - Headache [Unknown]
  - Weight increased [Unknown]
  - Depression [Unknown]
  - Fatigue [Unknown]
